FAERS Safety Report 8475167-9 (Version None)
Quarter: 2012Q2

REPORT INFORMATION
  Report Type: 
  Country: None (occurrence: None)
  Receive Date: 20120628
  Receipt Date: 20120619
  Transmission Date: 20120825
  Serious: Yes (Hospitalization, Other)
  Sender: FDA-Public Use
  Company Number: EC-PFIZER INC-2012142637

PATIENT
  Age: 82 Year
  Sex: Male

DRUGS (1)
  1. PHENYTOIN SODIUM CAP [Suspect]
     Dosage: 25 MG

REACTIONS (5)
  - OVERDOSE [None]
  - DRUG LEVEL INCREASED [None]
  - POISONING [None]
  - LOSS OF CONSCIOUSNESS [None]
  - CEREBRAL INFARCTION [None]
